FAERS Safety Report 5259916-9 (Version None)
Quarter: 2007Q1

REPORT INFORMATION
  Report Type: 
  Country: None (occurrence: None)
  Receive Date: 20070309
  Receipt Date: 20070301
  Transmission Date: 20070707
  Serious: Yes (Hospitalization)
  Sender: FDA-Public Use
  Company Number: GB-ROCHE-486220

PATIENT
  Age: 56 Year
  Sex: Male

DRUGS (1)
  1. CEFTRIAXONE [Suspect]
     Indication: BRAIN ABSCESS
     Route: 040

REACTIONS (3)
  - CONVULSION [None]
  - HEADACHE [None]
  - UNRESPONSIVE TO STIMULI [None]
